FAERS Safety Report 7374429-6 (Version None)
Quarter: 2011Q1

REPORT INFORMATION
  Report Type: 
  Country: None (occurrence: None)
  Receive Date: 20110325
  Receipt Date: 20110228
  Transmission Date: 20110831
  Serious: No
  Sender: FDA-Public Use
  Company Number: US-B.I. PHARMACEUTICALS,INC./RIDGEFIELD-2011-BP-02244BP

PATIENT
  Sex: Female

DRUGS (9)
  1. MULTAQ [Concomitant]
     Indication: ATRIAL FIBRILLATION
     Dosage: 800 MG
     Route: 048
     Dates: start: 20101128
  2. M.V.I. [Concomitant]
     Indication: PROPHYLAXIS
     Route: 048
  3. METOPROLOL [Concomitant]
     Indication: ATRIAL FIBRILLATION
     Dosage: 12.5 MG
     Route: 048
  4. SYNTHROID [Concomitant]
     Indication: HYPOTHYROIDISM
     Dosage: 0.75 MG
     Route: 048
  5. GLUCOSAMINE [Concomitant]
     Indication: PROPHYLAXIS
     Route: 048
  6. ACETAMINOPHEN [Concomitant]
     Indication: SINUS HEADACHE
  7. PREDNISONE [Suspect]
     Indication: SCAR
     Dosage: 40MG TAPER DOWN TO 5MG THEN D/C OVER 6 MONTHS
     Dates: start: 20100801, end: 20110201
  8. BENICAR [Concomitant]
     Indication: HYPERTENSION
     Dosage: 5 MG
     Route: 048
  9. PRADAXA [Suspect]
     Indication: ATRIAL FIBRILLATION
     Dosage: 300 MG
     Route: 048
     Dates: start: 20101128

REACTIONS (3)
  - SINUSITIS [None]
  - MIDDLE EAR EFFUSION [None]
  - ARTHRALGIA [None]
